FAERS Safety Report 7874708-X (Version None)
Quarter: 2011Q4

REPORT INFORMATION
  Report Type: 
  Country: None (occurrence: None)
  Receive Date: 20111031
  Receipt Date: 20111019
  Transmission Date: 20120403
  Serious: Yes (Hospitalization)
  Sender: FDA-Public Use
  Company Number: NL-JNJFOC-20111001022

PATIENT
  Sex: Male
  Weight: 64.3 kg

DRUGS (2)
  1. REMICADE [Suspect]
     Indication: CROHN'S DISEASE
     Route: 042
     Dates: start: 20080602
  2. ANTIBIOTICS [Concomitant]
     Indication: CROHN'S DISEASE

REACTIONS (2)
  - WEIGHT DECREASED [None]
  - APHAGIA [None]
